FAERS Safety Report 12836996 (Version 2)
Quarter: 2016Q4

REPORT INFORMATION
  Report Type: Report from Study
  Country: ES (occurrence: ES)
  Receive Date: 20161011
  Receipt Date: 20161014
  Transmission Date: 20170207
  Serious: Yes (Death, Hospitalization, Other)
  Sender: FDA-Public Use
  Company Number: ES-GILEAD-2016-0237380

PATIENT
  Age: 67 Year
  Sex: Male

DRUGS (4)
  1. TAMSULOSINA HCL [Concomitant]
     Indication: URINARY RETENTION
     Dosage: 0.4 MG, QD
     Route: 048
     Dates: start: 20141217, end: 20150105
  2. SOFOSBUVIR [Suspect]
     Active Substance: SOFOSBUVIR
     Indication: HEPATITIS C RNA POSITIVE
     Dosage: 400 MG, QD
     Route: 048
     Dates: start: 20141202, end: 20150107
  3. TRANGOREX [Concomitant]
     Active Substance: AMIODARONE HYDROCHLORIDE
     Indication: ATRIAL FIBRILLATION
     Route: 041
     Dates: start: 20141222, end: 20150105
  4. OLYSIO [Interacting]
     Active Substance: SIMEPREVIR
     Indication: HEPATITIS C RNA POSITIVE
     Dosage: 150 MG, QD
     Route: 048
     Dates: start: 20141202, end: 20150107

REACTIONS (2)
  - Hepatic encephalopathy [Fatal]
  - Condition aggravated [Fatal]

NARRATIVE: CASE EVENT DATE: 20150105
